FAERS Safety Report 6821604-2 (Version None)
Quarter: 2010Q3

REPORT INFORMATION
  Report Type: 
  Country: None (occurrence: None)
  Receive Date: 20100707
  Receipt Date: 20090112
  Transmission Date: 20110219
  Serious: No
  Sender: FDA-Public Use
  Company Number: US-PFIZER INC-2009155416

PATIENT
  Sex: Male

DRUGS (2)
  1. ZOLOFT [Suspect]
     Indication: SERUM SEROTONIN DECREASED
     Dosage: UNK
  2. SINEMET CR [Concomitant]
     Dosage: UNK

REACTIONS (3)
  - DIZZINESS [None]
  - ERUCTATION [None]
  - NAUSEA [None]
